FAERS Safety Report 12816271 (Version 1)
Quarter: 2016Q4

REPORT INFORMATION
  Report Type: Spontaneous
  Country: GR (occurrence: GR)
  Receive Date: 20161006
  Receipt Date: 20161006
  Transmission Date: 20170207
  Serious: No
  Sender: FDA-Public Use
  Company Number: GR-NOVEN PHARMACEUTICALS, INC.-GR2015001005

PATIENT
  Age: 34 Year
  Sex: Female

DRUGS (1)
  1. ESTRADIOL/NORETHISTERONE ACETATE [Suspect]
     Active Substance: ESTRADIOL\NORETHINDRONE ACETATE
     Indication: MENSTRUATION IRREGULAR
     Dosage: UNK, UNKNOWN
     Route: 062

REACTIONS (1)
  - Off label use [Unknown]
